FAERS Safety Report 23564161 (Version 2)
Quarter: 2024Q1

REPORT INFORMATION
  Report Type: Spontaneous
  Country: PL (occurrence: PL)
  Receive Date: 20240226
  Receipt Date: 20240307
  Transmission Date: 20240410
  Serious: Yes (Other)
  Sender: FDA-Public Use
  Company Number: PL-AMGEN-POLSP2024035003

PATIENT
  Age: 57 Year
  Sex: Female

DRUGS (4)
  1. VECTIBIX [Suspect]
     Active Substance: PANITUMUMAB
     Indication: Colorectal cancer metastatic
     Dosage: UNK, Q2WK
     Route: 065
     Dates: start: 20210609
  2. LEUCOVORIN [Concomitant]
     Active Substance: LEUCOVORIN\LEUCOVORIN CALCIUM
     Indication: Colorectal cancer metastatic
     Dosage: UNK
     Route: 065
     Dates: start: 20210609
  3. FLUOROURACIL [Concomitant]
     Active Substance: FLUOROURACIL
     Indication: Colorectal cancer metastatic
     Dosage: UNK
     Route: 065
     Dates: start: 20210609
  4. IRINOTECAN [Concomitant]
     Active Substance: IRINOTECAN
     Indication: Colorectal cancer metastatic
     Dosage: UNK
     Route: 065
     Dates: start: 20210609

REACTIONS (4)
  - Hepatotoxicity [Unknown]
  - Diarrhoea [Recovering/Resolving]
  - Rash [Unknown]
  - Anaemia [Unknown]

NARRATIVE: CASE EVENT DATE: 20210101
